FAERS Safety Report 7350359-0 (Version None)
Quarter: 2011Q1

REPORT INFORMATION
  Report Type: 
  Country: None (occurrence: None)
  Receive Date: 20110314
  Receipt Date: 20110310
  Transmission Date: 20110831
  Serious: Yes (Hospitalization, Other)
  Sender: FDA-Public Use
  Company Number: CA-ABBOTT-11P-028-0706451-00

PATIENT
  Sex: Female

DRUGS (1)
  1. HUMIRA [Suspect]
     Indication: CROHN'S DISEASE
     Route: 058
     Dates: start: 20091009

REACTIONS (6)
  - RECTAL HAEMORRHAGE [None]
  - ASTHENIA [None]
  - ANAEMIA [None]
  - DRUG INEFFECTIVE [None]
  - DIZZINESS [None]
  - INTESTINAL ULCER [None]
